FAERS Safety Report 8228796-1 (Version None)
Quarter: 2012Q1

REPORT INFORMATION
  Report Type: 
  Country: None (occurrence: None)
  Receive Date: 20120322
  Receipt Date: 20120315
  Transmission Date: 20120608
  Serious: Yes (Other)
  Sender: FDA-Public Use
  Company Number: CA-GLAXOSMITHKLINE-A0970029A

PATIENT
  Sex: Female

DRUGS (6)
  1. LORAZEPAM [Concomitant]
  2. XELODA [Suspect]
     Indication: PRODUCT USED FOR UNKNOWN INDICATION
     Dosage: 1650MG TWICE PER DAY
     Route: 065
  3. TYKERB [Suspect]
     Indication: BREAST CANCER
     Dosage: 1250MG PER DAY
     Route: 048
     Dates: start: 20110914
  4. SIMVASTATIN [Concomitant]
  5. ESCITALOPRAM [Concomitant]
  6. MORPHINE [Concomitant]

REACTIONS (3)
  - ERYTHEMA [None]
  - HAEMORRHAGE [None]
  - PAIN IN EXTREMITY [None]
